FAERS Safety Report 9437308 (Version 1)
Quarter: 2013Q3

REPORT INFORMATION
  Report Type: Spontaneous
  Country: GB (occurrence: GB)
  Receive Date: 20130802
  Receipt Date: 20130802
  Transmission Date: 20140515
  Serious: Yes (Other)
  Sender: FDA-Public Use
  Company Number: PHHY2013GB078837

PATIENT
  Age: 57 Year
  Sex: Female
  Weight: 65.31 kg

DRUGS (2)
  1. RAMIPRIL [Suspect]
     Indication: HYPERTENSION
     Dosage: 5 ML
     Route: 048
  2. AMLODIPINE [Concomitant]

REACTIONS (4)
  - Food aversion [Recovered/Resolved]
  - Increased upper airway secretion [Recovered/Resolved]
  - Sleep disorder [Recovered/Resolved]
  - Cough [Recovered/Resolved]
